FAERS Safety Report 10231561 (Version 1)
Quarter: 2014Q2

REPORT INFORMATION
  Report Type: Spontaneous
  Country: US (occurrence: US)
  Receive Date: 20140611
  Receipt Date: 20140611
  Transmission Date: 20141212
  Serious: Yes (Other)
  Sender: FDA-Public Use
  Company Number: US-CUBIST PHARMACEUTICAL, INC.-2013CBST000866

PATIENT
  Sex: 0

DRUGS (10)
  1. CUBICIN [Suspect]
     Indication: ENDOCARDITIS
     Dosage: 8 MG/KG, (DAYS 13-18)
     Route: 065
  2. CUBICIN [Suspect]
     Indication: STAPHYLOCOCCAL BACTERAEMIA
     Dosage: 8 MG/KG, (DAYS 19-35)
     Route: 065
  3. CEFTAROLINE FOSAMIL [Concomitant]
     Indication: STAPHYLOCOCCAL BACTERAEMIA
     Dosage: 600 UNK, Q8H (D 19-35)
     Route: 065
  4. CEFTAROLINE FOSAMIL [Concomitant]
     Dosage: 600 UNK, Q12H
     Route: 065
  5. LINEZOLID [Concomitant]
     Indication: STAPHYLOCOCCAL BACTERAEMIA
     Dosage: UNK UNK, UNK (D 6-18)
     Route: 065
  6. VANCOMYCIN [Concomitant]
     Indication: STAPHYLOCOCCAL BACTERAEMIA
     Dosage: UNK UNK, UNK (D 1-12)
     Route: 065
  7. VANCOMYCIN [Concomitant]
     Dosage: UNK UNK, UNK
     Route: 065
  8. MEROPENEM [Concomitant]
     Indication: STAPHYLOCOCCAL BACTERAEMIA
     Dosage: UNK UNK, UNK
     Route: 065
  9. CIPROFLOXACIN [Concomitant]
     Indication: STAPHYLOCOCCAL BACTERAEMIA
     Dosage: UNK UNK, UNK
     Route: 065
  10. MOXIFLOXACIN [Concomitant]
     Indication: STAPHYLOCOCCAL BACTERAEMIA
     Dosage: UNK UNK, UNK
     Route: 065

REACTIONS (2)
  - Pneumonitis [Unknown]
  - Eosinophilia [Unknown]
